FAERS Safety Report 5678346-9 (Version None)
Quarter: 2008Q1

REPORT INFORMATION
  Report Type: 
  Country: None (occurrence: None)
  Receive Date: 20080320
  Receipt Date: 20080314
  Transmission Date: 20080703
  Serious: Yes (Hospitalization)
  Sender: FDA-Public Use
  Company Number: 2008SP005329

PATIENT
  Age: 74 Year
  Sex: Female
  Weight: 48.8 kg

DRUGS (2)
  1. TEMODAR [Suspect]
     Indication: ACUTE MYELOID LEUKAEMIA
     Dosage: 100 MG/M2; QD; PO; 200 MG/M2; QD; PO
     Route: 048
     Dates: start: 20080206, end: 20080219
  2. TEMODAR [Suspect]
     Indication: ACUTE MYELOID LEUKAEMIA
     Dosage: 100 MG/M2; QD; PO; 200 MG/M2; QD; PO
     Route: 048
     Dates: start: 20080220, end: 20080226

REACTIONS (2)
  - FEBRILE NEUTROPENIA [None]
  - KIDNEY INFECTION [None]
